FAERS Safety Report 8463040-1 (Version None)
Quarter: 2012Q2

REPORT INFORMATION
  Report Type: 
  Country: None (occurrence: None)
  Receive Date: 20120625
  Receipt Date: 20100210
  Transmission Date: 20120825
  Serious: Yes (Other)
  Sender: FDA-Public Use
  Company Number: UY-ROCHE-684582

PATIENT
  Sex: Male
  Weight: 72 kg

DRUGS (4)
  1. GEMCITABINE [Suspect]
     Indication: MALIGNANT PERITONEAL NEOPLASM
     Dosage: FREQUENCY REPORTED AS THREE TIMES A MONTH.
     Route: 042
  2. UNKNOWN MEDICATION [Concomitant]
     Indication: MALIGNANT PERITONEAL NEOPLASM
     Dosage: DRUG NAME REPORTED AS SCORPION POISON (FROM CUBA), FREQUENCY REPORTED AS EVERY 6 HOURS,
     Route: 048
  3. CAPECITABINE [Suspect]
     Indication: MALIGNANT PERITONEAL NEOPLASM
     Dosage: FREQUENCY REPORTED AS TWICE A DAY FOR 14 DAYS. REST ONE WEEK AND RESTART.
     Route: 048
  4. CORTISONE EYE DROPS [Concomitant]
     Indication: EYE SWELLING
     Dosage: FREQUENCY REPORTED AS THREE TIMES A DAY FIRST DAY, TWICE A DAY SECOND DAY, ONCE A DAY THIRD DAY.
     Route: 061

REACTIONS (4)
  - BLINDNESS [None]
  - EYELID OEDEMA [None]
  - EYE SWELLING [None]
  - VOMITING [None]
